FAERS Safety Report 21363518 (Version 1)
Quarter: 2022Q3

REPORT INFORMATION
  Report Type: Spontaneous
  Country: CN (occurrence: CN)
  Receive Date: 20220922
  Receipt Date: 20220922
  Transmission Date: 20221027
  Serious: Yes (Hospitalization)
  Sender: FDA-Public Use
  Company Number: CN-BAYER-2022A127596

PATIENT
  Age: 54 Year
  Sex: Female
  Weight: 63 kg

DRUGS (1)
  1. AVELOX [Suspect]
     Active Substance: MOXIFLOXACIN HYDROCHLORIDE
     Indication: Gastritis
     Dosage: 400 MG, QD
     Route: 048
     Dates: start: 20220906, end: 20220906

REACTIONS (7)
  - Pruritus [Recovering/Resolving]
  - Skin oedema [Recovered/Resolved]
  - Rash [Recovered/Resolved]
  - Chest pain [Recovering/Resolving]
  - Pallor [Recovering/Resolving]
  - Cyanosis [Recovered/Resolved]
  - Product use in unapproved indication [None]

NARRATIVE: CASE EVENT DATE: 20220906
